FAERS Safety Report 13043236 (Version 1)
Quarter: 2016Q4

REPORT INFORMATION
  Report Type: Spontaneous
  Country: PA (occurrence: PA)
  Receive Date: 20161219
  Receipt Date: 20161219
  Transmission Date: 20170207
  Serious: Yes (Other)
  Sender: FDA-Public Use
  Company Number: PHHY2016PA170243

PATIENT
  Age: 70 Year
  Sex: Male
  Weight: 69.84 kg

DRUGS (1)
  1. PANTECTA [Suspect]
     Active Substance: PANTOPRAZOLE SODIUM
     Indication: PRODUCT USED FOR UNKNOWN INDICATION
     Route: 065

REACTIONS (7)
  - Gastritis [Unknown]
  - Post-traumatic pain [Unknown]
  - Lung cancer metastatic [Unknown]
  - Renal cancer [Unknown]
  - Bone cancer metastatic [Unknown]
  - Hepatic cancer metastatic [Unknown]
  - Bone pain [Unknown]

NARRATIVE: CASE EVENT DATE: 201506
